FAERS Safety Report 9494560 (Version 2)
Quarter: 2013Q4

REPORT INFORMATION
  Report Type: Spontaneous
  Country: GB (occurrence: GB)
  Receive Date: 20130903
  Receipt Date: 20131115
  Transmission Date: 20140711
  Serious: Yes (Other)
  Sender: FDA-Public Use
  Company Number: PHFR2013GB005007

PATIENT
  Sex: Male

DRUGS (7)
  1. VOLTAROL [Suspect]
     Dosage: 50 MG, TID
     Route: 048
  2. RANITIDINE [Concomitant]
  3. THIAMINE [Concomitant]
  4. FOLIC ACID [Concomitant]
  5. FERROUS FUMARATE [Concomitant]
  6. LAXIDO [Concomitant]
  7. BISOPROLOL [Concomitant]

REACTIONS (2)
  - Motor neurone disease [Recovered/Resolved]
  - Dysphagia [Not Recovered/Not Resolved]
